FAERS Safety Report 17563287 (Version 1)
Quarter: 2020Q1

REPORT INFORMATION
  Report Type: Spontaneous
  Country: GB (occurrence: GB)
  Receive Date: 20200319
  Receipt Date: 20200319
  Transmission Date: 20200409
  Serious: Yes (Other)
  Sender: FDA-Public Use
  Company Number: GB-ELI_LILLY_AND_COMPANY-GB202003005058

PATIENT
  Age: 32 Year
  Sex: Female
  Weight: 59 kg

DRUGS (17)
  1. HEDRIN ONCE [Concomitant]
     Dosage: USE AS DIRECTED
     Dates: start: 20200214
  2. MIRTAZAPINE. [Concomitant]
     Active Substance: MIRTAZAPINE
     Dosage: USE AS DIRECTED
     Dates: start: 20191125
  3. MACROGOL [Concomitant]
     Active Substance: POLYETHYLENE GLYCOLS
     Dosage: 2-4 SACHETS DAILY CAN USE 8 PER DAY FOR SEVER I...
     Dates: start: 20190508
  4. NEXPLANON [Concomitant]
     Active Substance: ETONOGESTREL
     Dosage: USE AS DIRECTED
     Dates: start: 20200127, end: 20200128
  5. KETOCONAZOLE. [Concomitant]
     Active Substance: KETOCONAZOLE
     Dosage: USE AS DIRECTED
     Dates: start: 20200211
  6. FOSTAIR [Concomitant]
     Active Substance: BECLOMETHASONE\FORMOTEROL
     Indication: CHRONIC OBSTRUCTIVE PULMONARY DISEASE
     Dosage: PUFFS
     Dates: start: 20190508
  7. BENZOYL PEROXIDE. [Concomitant]
     Active Substance: BENZOYL PEROXIDE
     Dosage: APPLY AT NIGHT
     Dates: start: 20200211, end: 20200212
  8. CASSIA ACUTIFOLIA [Concomitant]
     Dosage: NIGHT
     Dates: start: 20190508
  9. GLYCEROL [Concomitant]
     Active Substance: GLYCERIN
     Route: 054
     Dates: start: 20190508
  10. THIAMINE. [Concomitant]
     Active Substance: THIAMINE
     Dates: start: 20191125
  11. SPIRIVA [Concomitant]
     Active Substance: TIOTROPIUM BROMIDE MONOHYDRATE
     Dosage: PUFFS
     Dates: start: 20190508
  12. FLUOXETINE [Suspect]
     Active Substance: FLUOXETINE HYDROCHLORIDE
     Indication: PRODUCT USED FOR UNKNOWN INDICATION
     Dosage: UNK UNK, UNKNOWN
     Route: 065
     Dates: start: 20200211
  13. ZEROCREAM [Concomitant]
     Dosage: APPLY TO WHOLE BODY
     Dates: start: 20200211
  14. SALBUTAMOL [Concomitant]
     Active Substance: ALBUTEROL
     Dosage: AS NECESSARY
     Route: 055
     Dates: start: 20190508
  15. DOXYCYCLINE. [Concomitant]
     Active Substance: DOXYCYCLINE
     Dosage: ACUTE EXACERBATION OF COPD - ALTERNATIVE OPTION...
     Dates: start: 20200211
  16. PREDNISOLONE. [Concomitant]
     Active Substance: PREDNISOLONE
     Dosage: FOR 7 DAYS
     Dates: start: 20200211, end: 20200212
  17. OMEPRAZOLE. [Concomitant]
     Active Substance: OMEPRAZOLE
     Dosage: ON EMPTY STOMACH
     Dates: start: 20190508

REACTIONS (1)
  - Dystonia [Recovered/Resolved]

NARRATIVE: CASE EVENT DATE: 20200214
